FAERS Safety Report 4869592-2 (Version None)
Quarter: 2005Q4

REPORT INFORMATION
  Report Type: 
  Country: None (occurrence: None)
  Receive Date: 20051227
  Receipt Date: 20051216
  Transmission Date: 20060501
  Serious: Yes (Hospitalization)
  Sender: FDA-Public Use
  Company Number: HQWYE504811NOV05

PATIENT
  Age: 74 Year
  Sex: Male

DRUGS (2)
  1. MINOCYCLINE HCL [Suspect]
     Indication: PNEUMONIA
     Dosage: 200MG DAILY INTRAVENOUS DRIP
     Route: 041
     Dates: start: 20051026, end: 20051103
  2. PRODIF (FOSFLUCONAZOLE, ) [Suspect]
     Dosage: 400MG DAILY INTRAVENOUS
     Route: 042
     Dates: start: 20051019, end: 20051026

REACTIONS (7)
  - ALANINE AMINOTRANSFERASE INCREASED [None]
  - ASPARTATE AMINOTRANSFERASE INCREASED [None]
  - CONDITION AGGRAVATED [None]
  - GRANULOCYTOPENIA [None]
  - HEPATIC FUNCTION ABNORMAL [None]
  - LYMPHOCYTE STIMULATION TEST POSITIVE [None]
  - THROMBOCYTOPENIA [None]
